FAERS Safety Report 5726899-4 (Version None)
Quarter: 2008Q2

REPORT INFORMATION
  Report Type: 
  Country: None (occurrence: None)
  Receive Date: 20080502
  Receipt Date: 20080424
  Transmission Date: 20081010
  Serious: Yes (Other)
  Sender: FDA-Public Use
  Company Number: JP-PFIZER INC-2008036627

PATIENT
  Age: 55 Year
  Sex: Male

DRUGS (5)
  1. NORVASC [Suspect]
     Indication: HYPERTENSION
     Dosage: DAILY DOSE:5MG
     Route: 048
     Dates: start: 20080201, end: 20080401
  2. DIOVANE [Concomitant]
     Route: 048
  3. KERLONG [Concomitant]
     Route: 048
  4. AMLODIN [Concomitant]
     Route: 048
     Dates: start: 20080101, end: 20080201
  5. ALLEGRA [Concomitant]
     Route: 048

REACTIONS (1)
  - PHOTOSENSITIVITY REACTION [None]
